FAERS Safety Report 11093671 (Version 1)
Quarter: 2015Q2

REPORT INFORMATION
  Report Type: Spontaneous
  Country: US (occurrence: US)
  Receive Date: 20150506
  Receipt Date: 20150506
  Transmission Date: 20150821
  Serious: No
  Sender: FDA-Public Use
  Company Number: US-BAYER-2015-182900

PATIENT
  Age: 68 Year
  Sex: Male
  Weight: 86 kg

DRUGS (1)
  1. MIRALAX [Suspect]
     Active Substance: POLYETHYLENE GLYCOL 3350
     Indication: CONSTIPATION
     Dosage: 1 DOSE,QD
     Route: 048
     Dates: start: 201404

REACTIONS (3)
  - Diarrhoea [Recovered/Resolved]
  - Off label use [None]
  - Extra dose administered [None]

NARRATIVE: CASE EVENT DATE: 201404
